FAERS Safety Report 6501673-X (Version None)
Quarter: 2009Q4

REPORT INFORMATION
  Report Type: 
  Country: None (occurrence: None)
  Receive Date: 20091214
  Receipt Date: 20091207
  Transmission Date: 20100525
  Serious: Yes (Other)
  Sender: FDA-Public Use
  Company Number: AE 2009-159

PATIENT
  Age: 31 Year
  Sex: Female
  Weight: 113.3993 kg

DRUGS (5)
  1. FAZACLO ODT [Suspect]
     Indication: BIPOLAR DISORDER
     Dosage: 250MG DAILY PO
     Route: 048
     Dates: start: 20081125, end: 20091207
  2. DEPAKOTE [Concomitant]
  3. PROZAC [Concomitant]
  4. LIPITOR [Concomitant]
  5. NIASPAN [Concomitant]

REACTIONS (2)
  - SQUAMOUS CELL CARCINOMA [None]
  - TONGUE CARCINOMA STAGE II [None]
